FAERS Safety Report 5872875-0 (Version None)
Quarter: 2008Q3

REPORT INFORMATION
  Report Type: 
  Country: None (occurrence: None)
  Receive Date: 20080903
  Receipt Date: 20080819
  Transmission Date: 20090109
  Serious: Yes (Hospitalization)
  Sender: FDA-Public Use
  Company Number: 8036106

PATIENT
  Age: 75 Year
  Sex: Female
  Weight: 72.4 kg

DRUGS (15)
  1. KEPPRA [Suspect]
     Indication: PROPHYLAXIS
     Dosage: 500 MG 2/D PO
     Route: 048
     Dates: start: 20080801, end: 20080816
  2. REMERON [Concomitant]
  3. ATENOLOL [Concomitant]
  4. LASIX [Concomitant]
  5. SINEMET [Concomitant]
  6. GABAPENTIN [Concomitant]
  7. TYLENOL (CAPLET) [Concomitant]
  8. MIRALAX [Concomitant]
  9. COLACE [Concomitant]
  10. CIPRO [Concomitant]
  11. VITAMIN B COMPLEX CAP [Concomitant]
  12. CALCIUM [Concomitant]
  13. FOSAMAX [Concomitant]
  14. IRON [Concomitant]
  15. PRILOSEC [Concomitant]

REACTIONS (9)
  - ACTIVITIES OF DAILY LIVING IMPAIRED [None]
  - CONFUSIONAL STATE [None]
  - COORDINATION ABNORMAL [None]
  - DIZZINESS [None]
  - FATIGUE [None]
  - GAIT DISTURBANCE [None]
  - HEMIPARESIS [None]
  - SOMNOLENCE [None]
  - THINKING ABNORMAL [None]
